FAERS Safety Report 16431601 (Version 1)
Quarter: 2019Q2

REPORT INFORMATION
  Report Type: Spontaneous
  Country: ES (occurrence: ES)
  Receive Date: 20190614
  Receipt Date: 20190614
  Transmission Date: 20190711
  Serious: Yes (Hospitalization)
  Sender: FDA-Public Use
  Company Number: ES-PFIZER INC-2019248567

PATIENT
  Age: 20 Year
  Sex: Female

DRUGS (1)
  1. ZITROMAX [Suspect]
     Active Substance: AZITHROMYCIN
     Indication: PHARYNGOTONSILLITIS
     Dosage: 500 MG, UNK
     Dates: start: 20190424, end: 20190424

REACTIONS (5)
  - Dizziness [Recovering/Resolving]
  - Malaise [Recovered/Resolved]
  - Paraesthesia [Not Recovered/Not Resolved]
  - Tremor [Recovering/Resolving]
  - Vomiting [Recovered/Resolved]

NARRATIVE: CASE EVENT DATE: 20190424
